FAERS Safety Report 8767508 (Version 1)
Quarter: 2012Q4

REPORT INFORMATION
  Report Type: 
  Country: US (occurrence: US)
  Receive Date: 20120904
  Receipt Date: 20120904
  Transmission Date: 20130627
  Serious: Yes (Hospitalization)
  Sender: FDA-Public Use
  Company Number: US-BAYER-2012-090506

PATIENT
  Age: 59 Year
  Sex: Female

DRUGS (13)
  1. BETASERON [Suspect]
     Indication: MULTIPLE SCLEROSIS
     Dosage: 0.3 mg, QOD
     Route: 058
     Dates: start: 200709
  2. ROBAXIN [Concomitant]
  3. COZAAR [Concomitant]
  4. OXYCODONE [Concomitant]
  5. ZOFRAN [Concomitant]
  6. REGLAN [Concomitant]
  7. LEXAPRO [Concomitant]
  8. PRILOSEC [Concomitant]
  9. AMBIEN [Concomitant]
  10. SYNTHROID [Concomitant]
  11. MECLIZINE [Concomitant]
  12. PROCTOZONE H [Concomitant]
  13. DILAUDID [Concomitant]

REACTIONS (1)
  - Spinal laminectomy [None]
